FAERS Safety Report 19772147 (Version 1)
Quarter: 2021Q3

REPORT INFORMATION
  Report Type: Report from Study
  Country: None (occurrence: US)
  Receive Date: 20210901
  Receipt Date: 20210901
  Transmission Date: 20211014
  Serious: Yes (Hospitalization, Other)
  Sender: FDA-Public Use
  Company Number: US-ABBVIE-21K-163-4059575-00

PATIENT
  Age: 47 Year
  Sex: Female

DRUGS (1)
  1. HUMIRA [Suspect]
     Active Substance: ADALIMUMAB
     Indication: ANKYLOSING SPONDYLITIS
     Route: 058

REACTIONS (8)
  - Cardiac failure [Unknown]
  - Haemoglobin decreased [Recovered/Resolved]
  - Mast cell activation syndrome [Unknown]
  - Systemic lupus erythematosus [Unknown]
  - Addison^s disease [Unknown]
  - Pain [Recovered/Resolved]
  - Device related sepsis [Recovered/Resolved]
  - Combined immunodeficiency [Unknown]

NARRATIVE: CASE EVENT DATE: 20200214
